FAERS Safety Report 23787599 (Version 1)
Quarter: 2024Q2

REPORT INFORMATION
  Report Type: Spontaneous
  Country: GR (occurrence: GR)
  Receive Date: 20240426
  Receipt Date: 20240426
  Transmission Date: 20240716
  Serious: Yes (Other)
  Sender: FDA-Public Use
  Company Number: None

PATIENT
  Age: 63 Year
  Sex: Male
  Weight: 80 kg

DRUGS (8)
  1. LANSOPRAZOLE [Suspect]
     Active Substance: LANSOPRAZOLE
     Indication: Gastrooesophageal reflux disease
     Dosage: 30 MILLIGRAM, QD
     Route: 065
     Dates: start: 20240123, end: 20240328
  2. ONEALFA [Concomitant]
     Active Substance: ALFACALCIDOL
     Indication: End stage renal disease
     Dosage: 1 DOSAGE FORM, QD
     Route: 048
     Dates: start: 20210101
  3. NOVORAPID [Concomitant]
     Active Substance: INSULIN ASPART
     Indication: Type 2 diabetes mellitus
     Dosage: UNK UNK, QD
     Route: 058
     Dates: start: 20210101
  4. SALUREX [Concomitant]
     Indication: End stage renal disease
     Dosage: UNK UNK, QD
     Route: 048
     Dates: start: 20231101
  5. PLAVIX [Concomitant]
     Active Substance: CLOPIDOGREL BISULFATE
     Indication: Peripheral vascular disorder
     Dosage: 1 DOSAGE FORM, QD
     Route: 065
     Dates: start: 20210101
  6. CARVEDILOL [Concomitant]
     Active Substance: CARVEDILOL
     Indication: Coronary artery disease
     Dosage: UNK UNK, BID
     Route: 065
     Dates: start: 20210101
  7. LANTUS [Concomitant]
     Active Substance: INSULIN GLARGINE
     Indication: Type 2 diabetes mellitus
     Dosage: UNK UNK, QD
     Route: 058
     Dates: start: 20210101
  8. IVABRADINE [Concomitant]
     Active Substance: IVABRADINE
     Indication: Coronary artery disease
     Dosage: 1 DOSAGE FORM, QD
     Route: 065
     Dates: start: 20210101

REACTIONS (2)
  - Diarrhoea [Recovered/Resolved]
  - Angioedema [Recovered/Resolved]

NARRATIVE: CASE EVENT DATE: 20240129
